FAERS Safety Report 4624987-7 (Version None)
Quarter: 2005Q2

REPORT INFORMATION
  Report Type: 
  Country: None (occurrence: None)
  Receive Date: 20050325
  Receipt Date: 20050128
  Transmission Date: 20051028
  Serious: No
  Sender: FDA-Public Use
  Company Number: USA050189355

PATIENT
  Age: 73 Year
  Sex: Female
  Weight: 60 kg

DRUGS (6)
  1. FORTEO [Suspect]
     Indication: OSTEOPOROSIS
     Dosage: 20 UG/1 DAY
     Dates: start: 20041001
  2. METHOTREXATE [Concomitant]
  3. PLAQUENIL [Concomitant]
  4. TRILISATE [Concomitant]
  5. FOLIC ACID [Concomitant]
  6. PREDNISONE [Concomitant]

REACTIONS (2)
  - CHILLS [None]
  - TREMOR [None]
